FAERS Safety Report 11377763 (Version 1)
Quarter: 2015Q3

REPORT INFORMATION
  Report Type: Spontaneous
  Country: US (occurrence: US)
  Receive Date: 20150811
  Receipt Date: 20150811
  Transmission Date: 20151125
  Serious: No
  Sender: FDA-Public Use
  Company Number: US-ELI_LILLY_AND_COMPANY-US200908003070

PATIENT
  Sex: Female

DRUGS (3)
  1. HUMULIN N [Suspect]
     Active Substance: INSULIN HUMAN
     Dates: start: 1969, end: 2008
  2. BABY ASPIRIN [Concomitant]
     Active Substance: ASPIRIN
  3. COZAAR [Concomitant]
     Active Substance: LOSARTAN POTASSIUM
     Dates: start: 2001

REACTIONS (1)
  - Nerve injury [Not Recovered/Not Resolved]

NARRATIVE: CASE EVENT DATE: 1999
